FAERS Safety Report 21155197 (Version 1)
Quarter: 2022Q3

REPORT INFORMATION
  Report Type: Spontaneous
  Country: US (occurrence: None)
  Receive Date: 20220731
  Receipt Date: 20220731
  Transmission Date: 20221026
  Serious: Yes (Disabling)
  Sender: FDA-Public Use
  Company Number: None

PATIENT
  Age: 78 Year
  Sex: Male
  Weight: 78.3 kg

DRUGS (13)
  1. HYDROXYCHLOROQUINE [Suspect]
     Active Substance: HYDROXYCHLOROQUINE
     Indication: Cutaneous sarcoidosis
     Dosage: FREQUENCY : DAILY;?
     Route: 048
     Dates: start: 20220701, end: 20220708
  2. METFORMIN [Concomitant]
     Active Substance: METFORMIN HYDROCHLORIDE
  3. TAMSULOSIN [Concomitant]
     Active Substance: TAMSULOSIN
  4. SIMVASTATIN [Concomitant]
     Active Substance: SIMVASTATIN
  5. FOLIC ACID [Concomitant]
     Active Substance: FOLIC ACID
  6. MAGNESIUM [Concomitant]
     Active Substance: MAGNESIUM
  7. PEPCID [Concomitant]
     Active Substance: FAMOTIDINE
  8. ASPIRIN [Concomitant]
     Active Substance: ASPIRIN
  9. SERTRALINE [Concomitant]
     Active Substance: SERTRALINE HYDROCHLORIDE
  10. DIGOXIN [Concomitant]
     Active Substance: DIGOXIN
  11. PROPRANOLOL [Concomitant]
     Active Substance: PROPRANOLOL HYDROCHLORIDE
  12. PROCRIT [Concomitant]
     Active Substance: ERYTHROPOIETIN
  13. BENEFIBER [Concomitant]
     Active Substance: STARCH, WHEAT

REACTIONS (11)
  - Fatigue [None]
  - Asthenia [None]
  - Malaise [None]
  - Dizziness [None]
  - Decreased appetite [None]
  - Taste disorder [None]
  - Dyspnoea exertional [None]
  - Feeling abnormal [None]
  - Disturbance in attention [None]
  - Weight decreased [None]
  - Impaired quality of life [None]

NARRATIVE: CASE EVENT DATE: 20220708
